FAERS Safety Report 17322546 (Version 1)
Quarter: 2020Q1

REPORT INFORMATION
  Report Type: Spontaneous
  Country: CA (occurrence: CA)
  Receive Date: 20200127
  Receipt Date: 20200127
  Transmission Date: 20200409
  Serious: Yes (Hospitalization, Other)
  Sender: FDA-Public Use
  Company Number: CA-AUROBINDO-AUR-APL-2020-003616

PATIENT
  Age: 53 Year
  Sex: Female

DRUGS (4)
  1. ENBREL [Suspect]
     Active Substance: ETANERCEPT
     Indication: RHEUMATOID ARTHRITIS
     Dosage: 50 MILLIGRAM
     Route: 065
  2. PANTOPRAZOLE [Suspect]
     Active Substance: PANTOPRAZOLE
     Indication: EPIGASTRIC DISCOMFORT
     Dosage: UNK
     Route: 065
  3. METHOTREXATE. [Suspect]
     Active Substance: METHOTREXATE
     Indication: PRODUCT USED FOR UNKNOWN INDICATION
     Dosage: 7.5 MILLIGRAM, EVERY WEEK
     Route: 065
  4. METHOTREXATE. [Suspect]
     Active Substance: METHOTREXATE
     Dosage: UNK
     Route: 065

REACTIONS (12)
  - Facial pain [Unknown]
  - Pancreatitis [Unknown]
  - Limb injury [Unknown]
  - Blood pressure increased [Unknown]
  - Carpal tunnel decompression [Unknown]
  - Epigastric discomfort [Unknown]
  - Joint stiffness [Unknown]
  - Drug ineffective [Unknown]
  - Injury [Unknown]
  - Sciatica [Unknown]
  - Pancreatolithiasis [Unknown]
  - Osteoarthritis [Unknown]
